FAERS Safety Report 18915053 (Version 1)
Quarter: 2021Q1

REPORT INFORMATION
  Report Type: Spontaneous
  Country: US (occurrence: US)
  Receive Date: 20210219
  Receipt Date: 20210219
  Transmission Date: 20210420
  Serious: Yes (Other)
  Sender: FDA-Public Use
  Company Number: US-ASTELLAS-2021US005777

PATIENT
  Age: 66 Year
  Sex: Male

DRUGS (5)
  1. AMPHOTERICIN [Concomitant]
     Active Substance: AMPHOTERICIN B
     Indication: ANTIFUNGAL PROPHYLAXIS
     Dosage: UNK UNK, UNKNOWN FREQ. (NEBULIZED)
     Route: 065
  2. VALGANCICLOVIR. [Concomitant]
     Active Substance: VALGANCICLOVIR
     Indication: ANTIVIRAL PROPHYLAXIS
     Dosage: UNK UNK, UNKNOWN FREQ.
     Route: 042
  3. TACROLIMUS. [Suspect]
     Active Substance: TACROLIMUS
     Indication: LUNG TRANSPLANT
     Dosage: UNK UNK, UNKNOWN FREQ.
     Route: 065
  4. MYCOPHENOLATE [Concomitant]
     Active Substance: MYCOPHENOLIC ACID
     Indication: LUNG TRANSPLANT
     Dosage: UNK UNK, UNKNOWN FREQ.
     Route: 065
  5. PREDNISONE. [Concomitant]
     Active Substance: PREDNISONE
     Indication: LUNG TRANSPLANT
     Route: 065

REACTIONS (4)
  - Pulmonary interstitial emphysema syndrome [Unknown]
  - Organising pneumonia [Unknown]
  - Pneumothorax [Unknown]
  - Bronchial anastomosis complication [Unknown]
